FAERS Safety Report 5464193-X (Version None)
Quarter: 2007Q3

REPORT INFORMATION
  Report Type: 
  Country: None (occurrence: None)
  Receive Date: 20070921
  Receipt Date: 20070913
  Transmission Date: 20080115
  Serious: Yes (Life-Threatening, Hospitalization)
  Sender: FDA-Public Use
  Company Number: CN-BRACCO-BRO-012063

PATIENT
  Age: 30 Year
  Sex: Male

DRUGS (1)
  1. IOPAMIRO [Suspect]
     Route: 037
     Dates: start: 20070912, end: 20070912

REACTIONS (2)
  - BRAIN OEDEMA [None]
  - COMA [None]
